FAERS Safety Report 8181236-3 (Version None)
Quarter: 2012Q1

REPORT INFORMATION
  Report Type: 
  Country: None (occurrence: None)
  Receive Date: 20120302
  Receipt Date: 20120224
  Transmission Date: 20120608
  Serious: Yes (Other)
  Sender: FDA-Public Use
  Company Number: ES-PFIZER INC-2012050579

PATIENT
  Age: 24 Year
  Sex: Female

DRUGS (7)
  1. PYRAZINAMIDE [Concomitant]
     Indication: TUBERCULOSIS
  2. CLARITHROMYCIN [Concomitant]
     Indication: TUBERCULOSIS
  3. ETHAMBUTOL HYDROCHLORIDE [Interacting]
     Indication: TUBERCULOSIS
  4. ISONIAZID [Concomitant]
     Indication: TUBERCULOSIS
  5. PAROXETINE [Concomitant]
     Indication: DEPRESSION
     Dosage: UNK
  6. LINEZOLID [Suspect]
     Indication: TUBERCULOSIS
     Dosage: 1200 MG, 1X/DAY
  7. RIFAMPICIN [Concomitant]
     Indication: TUBERCULOSIS

REACTIONS (3)
  - DRUG INTERACTION [None]
  - POLYNEUROPATHY [None]
  - ANAEMIA [None]
